FAERS Safety Report 4863721-2 (Version None)
Quarter: 2005Q4

REPORT INFORMATION
  Report Type: 
  Country: None (occurrence: None)
  Receive Date: 20051222
  Receipt Date: 20050713
  Transmission Date: 20060501
  Serious: No
  Sender: FDA-Public Use
  Company Number: US-GLAXOSMITHKLINE-A0565980A

PATIENT
  Sex: Female

DRUGS (2)
  1. FLONASE [Suspect]
     Route: 048
  2. ANTIBIOTIC [Concomitant]
     Route: 065

REACTIONS (3)
  - DRY THROAT [None]
  - DYSPHONIA [None]
  - INCREASED UPPER AIRWAY SECRETION [None]
